FAERS Safety Report 5017751-0 (Version None)
Quarter: 2006Q2

REPORT INFORMATION
  Report Type: 
  Country: None (occurrence: None)
  Receive Date: 20060530
  Receipt Date: 20050429
  Transmission Date: 20061013
  Serious: Yes (Other)
  Sender: FDA-Public Use
  Company Number: 2005068831

PATIENT
  Age: 80 Year
  Sex: Female
  Weight: 59 kg

DRUGS (7)
  1. LYRICA [Suspect]
     Indication: NEURALGIA
     Dosage: 300 MG (150 MG, 2 IN 1 D), ORAL
     Route: 048
     Dates: start: 20050323
  2. TRAZODONE HCL [Concomitant]
  3. IBUPROFEN [Concomitant]
  4. GABAPENTIN [Concomitant]
  5. PARAMOL-118   (DIHYDROCODEINE BITARTRATE, PARACETAMOL) [Concomitant]
  6. BENDROFLUMETHIAZIDE (BENDROFLUMETHIAZIDE) [Concomitant]
  7. ALCALINOS VITA (ALUMINIUM HYDROXIDE, CALCIUM CARBONATE, MAGNESIUM HYDR [Concomitant]

REACTIONS (3)
  - COORDINATION ABNORMAL [None]
  - FEELING DRUNK [None]
  - SEDATION [None]
